FAERS Safety Report 6309385-2 (Version None)
Quarter: 2009Q3

REPORT INFORMATION
  Report Type: 
  Country: None (occurrence: None)
  Receive Date: 20090811
  Receipt Date: 20090521
  Transmission Date: 20100115
  Serious: No
  Sender: FDA-Public Use
  Company Number: 1000006418

PATIENT
  Age: 56 Year
  Sex: Female

DRUGS (9)
  1. SAVELLA [Suspect]
     Indication: FIBROMYALGIA
     Dosage: 12.5 MG (12.5 MG,1 IN 1 D),ORAL;  25 MG (12.5 MG, 2 IN 1 D),ORAL; 50 MG (25 MG, 2 IN 1 D),ORAL
     Route: 048
     Dates: start: 20090516, end: 20090517
  2. SAVELLA [Suspect]
     Indication: FIBROMYALGIA
     Dosage: 12.5 MG (12.5 MG,1 IN 1 D),ORAL;  25 MG (12.5 MG, 2 IN 1 D),ORAL; 50 MG (25 MG, 2 IN 1 D),ORAL
     Route: 048
  3. SAVELLA [Suspect]
     Indication: FIBROMYALGIA
     Dosage: 12.5 MG (12.5 MG,1 IN 1 D),ORAL;  25 MG (12.5 MG, 2 IN 1 D),ORAL; 50 MG (25 MG, 2 IN 1 D),ORAL
     Route: 048
     Dates: start: 20090518
  4. PLAQUENIL [Concomitant]
  5. PRINZIDE [Concomitant]
  6. WELLSUTRIN [Concomitant]
  7. PRILOSEC [Concomitant]
  8. AMTTRIPTYLINE [Concomitant]
  9. VITAMINS [Concomitant]

REACTIONS (3)
  - DIZZINESS [None]
  - FLUID RETENTION [None]
  - WEIGHT INCREASED [None]
